FAERS Safety Report 9898516 (Version 1)
Quarter: 2014Q1

REPORT INFORMATION
  Report Type: Report from Study
  Country: US (occurrence: US)
  Receive Date: 20140214
  Receipt Date: 20140214
  Transmission Date: 20141002
  Serious: Yes (Hospitalization, Other)
  Sender: FDA-Public Use
  Company Number: US-ASTRAZENECA-2014SE09252

PATIENT
  Age: 53 Year
  Sex: Male
  Weight: 189.6 kg

DRUGS (4)
  1. TOPROL-XL [Suspect]
     Indication: ATRIAL FIBRILLATION
     Route: 048
     Dates: start: 2009
  2. METFORMIN [Concomitant]
  3. GLIPIZIDE [Concomitant]
  4. NITROGLYCERINE [Concomitant]

REACTIONS (9)
  - Ejection fraction decreased [Unknown]
  - Tachycardia [Recovered/Resolved]
  - Atrial fibrillation [Recovered/Resolved]
  - Memory impairment [Not Recovered/Not Resolved]
  - Dyspnoea [Unknown]
  - Angina pectoris [Recovered/Resolved]
  - Visual acuity reduced [Not Recovered/Not Resolved]
  - Off label use [Unknown]
  - Drug ineffective for unapproved indication [Unknown]
